FAERS Safety Report 5734395-3 (Version None)
Quarter: 2008Q2

REPORT INFORMATION
  Report Type: 
  Country: None (occurrence: None)
  Receive Date: 20080508
  Receipt Date: 20080508
  Transmission Date: 20081010
  Serious: Yes (Other)
  Sender: FDA-Public Use
  Company Number: None

PATIENT
  Age: 28 Year
  Sex: Female
  Weight: 52.1637 kg

DRUGS (1)
  1. CREST PRO HEALTH [Suspect]
     Dosage: 1 OZ 2 DAILY PO
     Route: 048
     Dates: start: 20080101, end: 20080430

REACTIONS (1)
  - TOOTH DISCOLOURATION [None]
